FAERS Safety Report 8042084-8 (Version None)
Quarter: 2011Q4

REPORT INFORMATION
  Report Type: 
  Country: None (occurrence: None)
  Receive Date: 20111207
  Receipt Date: 20110920
  Transmission Date: 20120403
  Serious: Yes (Other)
  Sender: FDA-Public Use
  Company Number: SYN-0226-2011

PATIENT
  Sex: Female
  Weight: 74.83 kg

DRUGS (3)
  1. LEVOCETIRIZINE DIHYDROCHLORIDE [Suspect]
     Indication: MULTIPLE ALLERGIES
     Dosage: 5 MG, Q.D./B.I.D., P.O.
     Route: 048
     Dates: start: 20101204, end: 20101201
  2. PATANASE (OLOPATADINE HYDROCHLORIDE); 2006; ONGOING [Concomitant]
  3. FLONASE (FLUTICASONE PROPIONATE); 2001; ONGOING [Concomitant]

REACTIONS (1)
  - ABDOMINAL PAIN UPPER [None]
